FAERS Safety Report 5477821-X (Version None)
Quarter: 2007Q4

REPORT INFORMATION
  Report Type: 
  Country: None (occurrence: None)
  Receive Date: 20071004
  Receipt Date: 20070927
  Transmission Date: 20080405
  Serious: Yes (Hospitalization)
  Sender: FDA-Public Use
  Company Number: JP-MERCK-0709USA04700

PATIENT
  Age: 82 Year
  Sex: Male

DRUGS (5)
  1. STROMECTOL [Suspect]
     Indication: ACARODERMATITIS
     Route: 048
     Dates: start: 20070925, end: 20070925
  2. ASPIRIN [Concomitant]
     Route: 048
  3. SYMMETREL [Concomitant]
     Route: 048
  4. ALESION [Concomitant]
     Route: 048
  5. ATARAX [Concomitant]
     Route: 048

REACTIONS (1)
  - ALTERED STATE OF CONSCIOUSNESS [None]
